FAERS Safety Report 24778303 (Version 1)
Quarter: 2024Q4

REPORT INFORMATION
  Report Type: Spontaneous
  Country: US (occurrence: None)
  Receive Date: 20241225
  Receipt Date: 20241225
  Transmission Date: 20250115
  Serious: Yes (Other)
  Sender: Public
  Company Number: None

PATIENT
  Age: 3 Year
  Sex: Female
  Weight: 12.15 kg

DRUGS (1)
  1. AMOXICILLIN\CLAVULANIC ACID [Suspect]
     Active Substance: AMOXICILLIN\CLAVULANIC ACID
     Indication: Ear infection
     Dates: start: 20241223, end: 20241224

REACTIONS (4)
  - Middle insomnia [None]
  - Fear [None]
  - Hallucination, visual [None]
  - Therapy interrupted [None]

NARRATIVE: CASE EVENT DATE: 20241223
